FAERS Safety Report 19647623 (Version 1)
Quarter: 2021Q3

REPORT INFORMATION
  Report Type: Spontaneous
  Country: IT (occurrence: IT)
  Receive Date: 20210802
  Receipt Date: 20210802
  Transmission Date: 20211014
  Serious: Yes (Hospitalization)
  Sender: FDA-Public Use
  Company Number: IT-ALLERGAN-2127040US

PATIENT
  Sex: Female

DRUGS (1)
  1. ESCITALOPRAM OXALATE ? BP [Suspect]
     Active Substance: ESCITALOPRAM OXALATE
     Indication: INTENTIONAL SELF-INJURY
     Dosage: OVERDOSE: 200MG ESCITALOPRAM
     Route: 065
     Dates: start: 20210629, end: 20210629

REACTIONS (5)
  - Blood creatine phosphokinase increased [Recovering/Resolving]
  - Serotonin syndrome [Recovering/Resolving]
  - Intentional overdose [Unknown]
  - Loss of consciousness [Recovering/Resolving]
  - Drug abuse [Recovering/Resolving]

NARRATIVE: CASE EVENT DATE: 20210629
